FAERS Safety Report 18533582 (Version 1)
Quarter: 2020Q4

REPORT INFORMATION
  Report Type: Spontaneous
  Country: CZ (occurrence: CZ)
  Receive Date: 20201123
  Receipt Date: 20201123
  Transmission Date: 20210114
  Serious: Yes (Other)
  Sender: FDA-Public Use
  Company Number: CZ-ALLERGAN-2045401US

PATIENT
  Sex: Female
  Weight: 60 kg

DRUGS (12)
  1. ESCITALOPRAM OXALATE - BP [Suspect]
     Active Substance: ESCITALOPRAM OXALATE
     Indication: PRODUCT USED FOR UNKNOWN INDICATION
     Dosage: 10 MG, QAM 0,5-0-0
     Route: 048
     Dates: start: 20200921
  2. ESCITALOPRAM OXALATE - BP [Suspect]
     Active Substance: ESCITALOPRAM OXALATE
     Dosage: 10 MG, QAM (1-0-0)
     Route: 048
     Dates: start: 20200724
  3. TIAPRIDAL [Concomitant]
     Active Substance: TIAPRIDE HYDROCHLORIDE
     Dosage: 100 MG, 0,5-0-0,5
     Route: 048
     Dates: start: 20200804
  4. ESCITALOPRAM OXALATE - BP [Suspect]
     Active Substance: ESCITALOPRAM OXALATE
     Dosage: 10 MG, QAM (1-0-0)
     Route: 048
     Dates: start: 20200810
  5. TIAPRIDAL [Concomitant]
     Active Substance: TIAPRIDE HYDROCHLORIDE
     Indication: PRODUCT USED FOR UNKNOWN INDICATION
     Dosage: 100 MG, 0,5-0-0,5
     Route: 048
     Dates: start: 20200810
  6. TIAPRIDAL [Concomitant]
     Active Substance: TIAPRIDE HYDROCHLORIDE
     Dosage: 100 MG, 0,5-0-0,5
     Route: 048
     Dates: start: 20200728
  7. ESCITALOPRAM OXALATE - BP [Suspect]
     Active Substance: ESCITALOPRAM OXALATE
     Dosage: 10 MG, QAM (1-0-0)
     Route: 048
     Dates: start: 20200727
  8. TIAPRIDAL [Concomitant]
     Active Substance: TIAPRIDE HYDROCHLORIDE
     Dosage: 100 MG, 0,5-0-0,5
     Route: 048
     Dates: start: 20200727
  9. TIAPRIDAL [Concomitant]
     Active Substance: TIAPRIDE HYDROCHLORIDE
     Dosage: 100 MG, BID (1-0-1)
     Route: 048
     Dates: start: 20200724
  10. ESCITALOPRAM OXALATE - BP [Suspect]
     Active Substance: ESCITALOPRAM OXALATE
     Dosage: 10 MG, QAM (1-0-0)
     Route: 048
     Dates: start: 20200804
  11. ESCITALOPRAM OXALATE - BP [Suspect]
     Active Substance: ESCITALOPRAM OXALATE
     Dosage: 10 MG, QAM (1-0-0)
     Route: 048
     Dates: start: 20200824
  12. ESCITALOPRAM OXALATE - BP [Suspect]
     Active Substance: ESCITALOPRAM OXALATE
     Dosage: 10 MG, QAM (1-0-0)
     Route: 048
     Dates: start: 20200728

REACTIONS (6)
  - Gait inability [Unknown]
  - Malaise [Unknown]
  - Muscle twitching [Unknown]
  - Antidepressant discontinuation syndrome [Unknown]
  - Headache [Unknown]
  - Hypertension [Unknown]

NARRATIVE: CASE EVENT DATE: 20200801
